FAERS Safety Report 24046983 (Version 1)
Quarter: 2024Q3

REPORT INFORMATION
  Report Type: Spontaneous
  Country: US (occurrence: US)
  Receive Date: 20240703
  Receipt Date: 20240703
  Transmission Date: 20241017
  Serious: No
  Sender: LEXICON PHARMACEUTICALS
  Company Number: US-LEX-000333

PATIENT
  Age: 75 Year
  Sex: Female

DRUGS (8)
  1. INPEFA [Suspect]
     Active Substance: SOTAGLIFLOZIN
     Indication: Cardiac failure
     Route: 048
     Dates: start: 202404
  2. BUMETANIDE [Suspect]
     Active Substance: BUMETANIDE
     Indication: Cardiac failure
  3. ASPIRIN [Concomitant]
     Active Substance: ASPIRIN
  4. METOPROLOL TARTRATE [Concomitant]
     Active Substance: METOPROLOL TARTRATE
  5. LOSARTAN POTASSIUM [Concomitant]
     Active Substance: LOSARTAN POTASSIUM
  6. LEVOXYL [Concomitant]
     Active Substance: LEVOTHYROXINE SODIUM
  7. MELOXICAM [Concomitant]
     Active Substance: MELOXICAM
  8. POTASSIUM [Concomitant]
     Active Substance: POTASSIUM

REACTIONS (1)
  - Urinary tract infection [Not Recovered/Not Resolved]
